FAERS Safety Report 10403644 (Version 5)
Quarter: 2015Q4

REPORT INFORMATION
  Report Type: Spontaneous
  Country: US (occurrence: US)
  Receive Date: 20140822
  Receipt Date: 20151014
  Transmission Date: 20160304
  Serious: Yes (Hospitalization)
  Sender: FDA-Public Use
  Company Number: US-ELI_LILLY_AND_COMPANY-US201408004709

PATIENT
  Sex: Male

DRUGS (15)
  1. PRAVOSTIN [Concomitant]
  2. TESTOSTERONE. [Concomitant]
     Active Substance: TESTOSTERONE
  3. ATENOLOL. [Concomitant]
     Active Substance: ATENOLOL
  4. VALTREX [Concomitant]
     Active Substance: VALACYCLOVIR HYDROCHLORIDE
  5. CYMBALTA [Suspect]
     Active Substance: DULOXETINE HYDROCHLORIDE
     Indication: DEPRESSION
     Dosage: UNK
     Dates: start: 200907
  6. CYMBALTA [Suspect]
     Active Substance: DULOXETINE HYDROCHLORIDE
     Dosage: 120 MG, UNK
     Dates: end: 20130628
  7. ATACAND [Concomitant]
     Active Substance: CANDESARTAN CILEXETIL
  8. GAMMAGARD [Concomitant]
     Active Substance: HUMAN IMMUNOGLOBULIN G
  9. CYMBALTA [Suspect]
     Active Substance: DULOXETINE HYDROCHLORIDE
     Dosage: 90 MG, UNK
     Dates: start: 201004
  10. ATIVAN [Concomitant]
     Active Substance: LORAZEPAM
  11. CYMBALTA [Suspect]
     Active Substance: DULOXETINE HYDROCHLORIDE
     Dosage: 30 MG, UNK
     Dates: start: 20130707, end: 20130716
  12. OXAPROZIN. [Concomitant]
     Active Substance: OXAPROZIN
  13. CYMBALTA [Suspect]
     Active Substance: DULOXETINE HYDROCHLORIDE
     Dosage: 60 MG, QD
     Route: 065
  14. CRESTOR [Concomitant]
     Active Substance: ROSUVASTATIN CALCIUM
  15. NUVIGIL [Concomitant]
     Active Substance: ARMODAFINIL

REACTIONS (18)
  - Anger [Not Recovered/Not Resolved]
  - Anxiety [Unknown]
  - Confusional state [Unknown]
  - Psychiatric symptom [Unknown]
  - Headache [Recovering/Resolving]
  - Insomnia [Not Recovered/Not Resolved]
  - Drug withdrawal syndrome [Not Recovered/Not Resolved]
  - Emotional distress [Unknown]
  - Decreased interest [Unknown]
  - Memory impairment [Not Recovered/Not Resolved]
  - Paraesthesia [Recovered/Resolved]
  - Pancreatitis [Unknown]
  - Anxiety [Not Recovered/Not Resolved]
  - Disorientation [Unknown]
  - Dizziness [Unknown]
  - Agitation [Unknown]
  - Abnormal behaviour [Unknown]
  - Erectile dysfunction [Unknown]
